FAERS Safety Report 5513195-3 (Version None)
Quarter: 2007Q4

REPORT INFORMATION
  Report Type: 
  Country: None (occurrence: None)
  Receive Date: 20071112
  Receipt Date: 20071029
  Transmission Date: 20080405
  Serious: Yes (Hospitalization, Disabling, Other)
  Sender: FDA-Public Use
  Company Number: US-PURDUE-USA_2007_0028872

PATIENT
  Sex: Male

DRUGS (18)
  1. OXYCONTIN [Suspect]
     Indication: PAIN
     Dosage: 960 MG, DAILY
     Route: 048
     Dates: start: 19990101, end: 20070308
  2. OXYFAST CONCENTRATE 20 MG/ML [Concomitant]
     Indication: PAIN
  3. VIOXX [Concomitant]
     Indication: DRUG USE FOR UNKNOWN INDICATION
     Dosage: UNK MG, UNK
     Route: 048
  4. NEURONTIN [Concomitant]
     Indication: DRUG USE FOR UNKNOWN INDICATION
     Dosage: UNK MG, UNK
     Route: 048
  5. LEXAPRO [Concomitant]
     Indication: DRUG USE FOR UNKNOWN INDICATION
     Dosage: UNK MG, UNK
     Route: 048
  6. SEROQUEL [Concomitant]
     Indication: DRUG USE FOR UNKNOWN INDICATION
     Dosage: UNK MG, UNK
     Route: 048
  7. TRAZODONE HCL [Concomitant]
     Indication: DRUG USE FOR UNKNOWN INDICATION
     Dosage: UNK, UNK
     Route: 048
  8. SYNTHROID [Concomitant]
     Indication: DRUG USE FOR UNKNOWN INDICATION
     Dosage: UNK MG, UNK
     Route: 048
  9. TRANDATE [Concomitant]
     Indication: DRUG USE FOR UNKNOWN INDICATION
     Dosage: UNK, UNK
  10. LEVOXYL [Concomitant]
     Indication: DRUG USE FOR UNKNOWN INDICATION
     Dosage: UNK MG, UNK
     Route: 050
  11. ATARAX [Concomitant]
     Indication: DRUG USE FOR UNKNOWN INDICATION
     Dosage: UNK MG, UNK
     Route: 048
  12. FOLIC ACID [Concomitant]
     Indication: DRUG USE FOR UNKNOWN INDICATION
     Dosage: UNK, UNK
     Route: 048
  13. PROZAC [Concomitant]
     Indication: DEPRESSION
     Dosage: UNK MG, UNK
     Route: 048
  14. WELLBUTRIN [Concomitant]
     Indication: DEPRESSION
     Dosage: UNK MCG, UNK
     Route: 048
  15. PERCOCET [Concomitant]
     Indication: DRUG USE FOR UNKNOWN INDICATION
     Dosage: UNK MG, UNK
     Route: 048
  16. CLONIDINE [Concomitant]
     Indication: HYPERTENSION
     Dosage: UNK MG, UNK
     Route: 048
  17. METHADONE HCL [Concomitant]
     Indication: DRUG USE FOR UNKNOWN INDICATION
     Dosage: UNK MG, UNK
     Route: 048
  18. TIGAN [Concomitant]
     Indication: DRUG USE FOR UNKNOWN INDICATION
     Dosage: UNK MG, UNK
     Route: 048

REACTIONS (21)
  - ALCOHOLISM [None]
  - ANXIETY DISORDER [None]
  - CEREBRAL DISORDER [None]
  - CLUSTER HEADACHE [None]
  - CONSTIPATION [None]
  - CRYING [None]
  - DISTURBANCE IN ATTENTION [None]
  - DRUG ABUSE [None]
  - DRUG DEPENDENCE [None]
  - ENCEPHALOPATHY [None]
  - EUPHORIC MOOD [None]
  - FALL [None]
  - HYPERTENSION [None]
  - IMPAIRED DRIVING ABILITY [None]
  - INSOMNIA [None]
  - MAJOR DEPRESSION [None]
  - MALAISE [None]
  - MALNUTRITION [None]
  - ROAD TRAFFIC ACCIDENT [None]
  - SUICIDAL IDEATION [None]
  - WITHDRAWAL SYNDROME [None]
